FAERS Safety Report 10185715 (Version 1)
Quarter: 2014Q2

REPORT INFORMATION
  Report Type: Spontaneous
  Country: US (occurrence: None)
  Receive Date: 20140520
  Receipt Date: 20140520
  Transmission Date: 20141212
  Serious: Yes (Other)
  Sender: FDA-Public Use
  Company Number: None

PATIENT
  Age: 58 Year
  Sex: Female
  Weight: 63.05 kg

DRUGS (8)
  1. LIDOCANE [Suspect]
     Indication: INTERVERTEBRAL DISC DEGENERATION
     Dosage: 1 PATCH  1 DAILY X 12HRS PATCH
     Dates: start: 20130621, end: 20131004
  2. LIDOCANE [Suspect]
     Indication: NECK PAIN
     Dosage: 1 PATCH  1 DAILY X 12HRS PATCH
     Dates: start: 20130621, end: 20131004
  3. GABAPENTIN [Concomitant]
  4. HCTZ [Concomitant]
  5. ZOLOFT [Concomitant]
  6. BUPROPION [Concomitant]
  7. OXYBUTYNIN [Concomitant]
  8. PIROXICAN [Concomitant]

REACTIONS (2)
  - Dermatitis contact [None]
  - Product substitution issue [None]
